FAERS Safety Report 21736036 (Version 1)
Quarter: 2022Q4

REPORT INFORMATION
  Report Type: Spontaneous
  Country: US (occurrence: US)
  Receive Date: 20221215
  Receipt Date: 20221215
  Transmission Date: 20230113
  Serious: No
  Sender: FDA-Public Use
  Company Number: US-NOVOPROD-873046

PATIENT
  Sex: Female

DRUGS (2)
  1. LEVEMIR [Suspect]
     Active Substance: INSULIN DETEMIR
     Dosage: 26 IU, QD(18 UNITS AM AND 8 UNITS PM)
     Route: 058
     Dates: start: 2019
  2. LEVEMIR [Suspect]
     Active Substance: INSULIN DETEMIR
     Indication: Product used for unknown indication
     Dosage: UNK,BID
     Route: 058

REACTIONS (2)
  - Chest discomfort [Unknown]
  - Injection site urticaria [Not Recovered/Not Resolved]
